FAERS Safety Report 11163525 (Version 2)
Quarter: 2015Q3

REPORT INFORMATION
  Report Type: Spontaneous
  Country: CN (occurrence: CN)
  Receive Date: 20150604
  Receipt Date: 20150909
  Transmission Date: 20151125
  Serious: Yes (Other)
  Sender: FDA-Public Use
  Company Number: CN-PFIZER INC-2015182342

PATIENT
  Age: 52 Year
  Sex: Female

DRUGS (1)
  1. SUTENT [Suspect]
     Active Substance: SUNITINIB MALATE
     Indication: RENAL CELL CARCINOMA
     Dosage: UNK
     Dates: start: 2015, end: 2015

REACTIONS (2)
  - Decreased appetite [Unknown]
  - Cytopenia [Unknown]

NARRATIVE: CASE EVENT DATE: 2015
